FAERS Safety Report 8696825 (Version 2)
Quarter: 2012Q4

REPORT INFORMATION
  Report Type: 
  Country: US (occurrence: US)
  Receive Date: 20120801
  Receipt Date: 20121206
  Transmission Date: 20130627
  Serious: Yes (Other)
  Sender: FDA-Public Use
  Company Number: US-VERTEX PHARMACEUTICALS INC.-AE-2012-010817

PATIENT
  Age: 64 Year
  Sex: Male

DRUGS (9)
  1. INCIVEK [Suspect]
     Indication: HEPATITIS C
     Dosage: 2250 mg, qd
     Route: 048
     Dates: start: 20120710, end: 20120713
  2. PEGINTERFERON ALFA-2A [Suspect]
     Indication: HEPATITIS C
     Dosage: 180 ?g, qw
     Route: 058
     Dates: start: 20120710
  3. RIBAVIRIN [Suspect]
     Indication: HEPATITIS C
     Dosage: 1200 mg, qd
     Route: 048
     Dates: start: 20120710
  4. ATENOLOL [Concomitant]
     Dates: start: 20081008
  5. PRAVASTATIN SODIUM [Concomitant]
     Dates: start: 20101105
  6. METFORMIN [Concomitant]
     Dates: start: 20110524
  7. FLUOCINONIDE [Concomitant]
     Dates: start: 20111005
  8. FISH OIL [Concomitant]
     Dates: start: 20120101
  9. CITALOPRAM HYDROBROMIDE [Concomitant]
     Dates: start: 20120604

REACTIONS (2)
  - Drug eruption [Recovered/Resolved]
  - Proctalgia [Unknown]
